FAERS Safety Report 4367348-0 (Version None)
Quarter: 2004Q2

REPORT INFORMATION
  Report Type: 
  Country: None (occurrence: None)
  Receive Date: 20040527
  Receipt Date: 20040510
  Transmission Date: 20050107
  Serious: Yes (Life-Threatening, Hospitalization)
  Sender: FDA-Public Use
  Company Number: DSA_24375_2004

PATIENT
  Age: 39 Year
  Sex: Female

DRUGS (2)
  1. SODIUM DICLOFENAC [Suspect]
     Indication: THERAPEUTIC PROCEDURE
     Dosage: 100 MG ONCE
  2. DICLOFENAC 1% PETROLEUM [Suspect]
     Indication: SKIN TEST
     Dosage: 1 PERCENT ONCE TD

REACTIONS (5)
  - ANAPHYLACTIC SHOCK [None]
  - BLOOD PRESSURE DIASTOLIC INCREASED [None]
  - PRODUCTIVE COUGH [None]
  - RESPIRATORY FAILURE [None]
  - SKIN TEST POSITIVE [None]
